FAERS Safety Report 7712254-4 (Version None)
Quarter: 2011Q3

REPORT INFORMATION
  Report Type: 
  Country: None (occurrence: None)
  Receive Date: 20110826
  Receipt Date: 20110819
  Transmission Date: 20111222
  Serious: Yes (Other)
  Sender: FDA-Public Use
  Company Number: HU-PFIZER INC-2011183155

PATIENT
  Age: 81 Year
  Sex: Female
  Weight: 60 kg

DRUGS (1)
  1. XALATAN [Suspect]
     Indication: GLAUCOMA
     Dosage: 1 DROP BOTH EYES, 1X/DAY
     Dates: start: 20010101

REACTIONS (3)
  - VISUAL ACUITY REDUCED [None]
  - EYE PAIN [None]
  - EYE IRRITATION [None]
